FAERS Safety Report 16194457 (Version 2)
Quarter: 2019Q3

REPORT INFORMATION
  Report Type: Spontaneous
  Country: US (occurrence: US)
  Receive Date: 20190414
  Receipt Date: 20190702
  Transmission Date: 20191004
  Serious: No
  Sender: FDA-Public Use
  Company Number: US-TEVA-2019-US-1033716

PATIENT
  Sex: Female

DRUGS (1)
  1. TEVA BUPRENORPHINE [Suspect]
     Active Substance: BUPRENORPHINE
     Indication: PAIN
     Dosage: FORM STRENGTH: 10 MCG / HR
     Route: 065

REACTIONS (5)
  - Product physical issue [Unknown]
  - Drug intolerance [Unknown]
  - Vomiting [Unknown]
  - Drug ineffective [Unknown]
  - Nausea [Unknown]
